FAERS Safety Report 9337918 (Version 4)
Quarter: 2013Q3

REPORT INFORMATION
  Report Type: Report from Study
  Country: US (occurrence: US)
  Receive Date: 20130609
  Receipt Date: 20130822
  Transmission Date: 20140515
  Serious: Yes (Life-Threatening, Hospitalization, Other)
  Sender: FDA-Public Use
  Company Number: PHEH2013US008061

PATIENT
  Sex: Male
  Weight: 86.36 kg

DRUGS (21)
  1. TOBI [Suspect]
     Indication: BRONCHIECTASIS
     Dosage: 300 MG BID (28 DAYS ON AND 28 DAYS OFF)
     Dates: start: 20130222
  2. DALIRESP [Suspect]
     Dosage: 1 DF, QD
  3. ASPIRIN [Concomitant]
     Dosage: 1 DF, QD
  4. ALBUTEROL SULFATE [Concomitant]
     Dosage: TWO PUFFS AS NEEDED EVERY 4HS
  5. VITAMIN D3 [Concomitant]
     Dosage: 1 DF, QD
  6. MAG OXIDE [Concomitant]
     Dosage: 1 DF, BID
  7. ADVAIR [Concomitant]
     Dosage: 2 DF, BID
  8. SPIRIVA [Concomitant]
     Dosage: 1 DF, QD
  9. MARINOL [Concomitant]
     Dosage: 1 DF, TID
  10. PRADAXA [Concomitant]
     Dosage: 1 DF, BID
  11. CHOLECALCIFEROL [Concomitant]
     Dosage: 1 DF, QD
  12. MUCINEX [Concomitant]
     Dosage: 1 DF, PRN
  13. LORAZEPAM [Concomitant]
     Dosage: 1 DF, BID
  14. ONDASETRON [Concomitant]
     Dosage: EVERY 8 HOURS, AS NEEDED
  15. OXYGEN [Concomitant]
     Dosage: 24 HOURS PER DAY
  16. DRONABINOL [Concomitant]
     Dosage: 1 DF, TID
  17. LORTAB [Concomitant]
     Dosage: 1 DF, PRN (7.5) EVERY 6 HOURS
  18. LORTAB [Concomitant]
     Dosage: AS DIRECTED, EVERY 8 HOURS (5)
  19. CIPRO//CIPROFLOXACIN [Concomitant]
     Dosage: 1 DRP, Q8H
  20. NEPHRO-VITE [Concomitant]
     Dosage: THREE CANS DAILY
  21. CHEMOTHERAPEUTICS [Concomitant]
     Indication: BLADDER CANCER
     Dosage: UNK

REACTIONS (12)
  - Apparent death [Unknown]
  - Neutropenic sepsis [Unknown]
  - Pneumonia staphylococcal [Unknown]
  - Pneumonia pseudomonal [Unknown]
  - Pneumonia bacterial [Unknown]
  - Deafness [Not Recovered/Not Resolved]
  - Cachexia [Recovering/Resolving]
  - Weight decreased [Recovering/Resolving]
  - Appetite disorder [Recovering/Resolving]
  - Renal disorder [Unknown]
  - Vital capacity decreased [Unknown]
  - Forced expiratory volume decreased [Unknown]
